FAERS Safety Report 26006331 (Version 1)
Quarter: 2025Q4

REPORT INFORMATION
  Report Type: Spontaneous
  Country: US (occurrence: US)
  Receive Date: 20251106
  Receipt Date: 20251106
  Transmission Date: 20260118
  Serious: Yes (Other)
  Sender: HIKMA
  Company Number: US-HIKMA PHARMACEUTICALS USA INC.-US-H14001-24-08556

PATIENT
  Age: 23 Year
  Sex: Female
  Weight: 54.4 kg

DRUGS (17)
  1. NAPROXEN [Suspect]
     Active Substance: NAPROXEN
     Indication: Pain in extremity
     Dosage: UNKNOWN
     Route: 065
  2. OMEPRAZOLE [Suspect]
     Active Substance: OMEPRAZOLE
     Indication: Gastrooesophageal reflux disease
     Dosage: UNKNOWN
     Route: 065
  3. REXULTI [Suspect]
     Active Substance: BREXPIPRAZOLE
     Indication: Mood swings
     Dosage: 0.5 UNKNOWN, QD
     Route: 065
  4. REXULTI [Suspect]
     Active Substance: BREXPIPRAZOLE
     Indication: Anxiety
  5. REXULTI [Suspect]
     Active Substance: BREXPIPRAZOLE
     Indication: Depression
  6. ARIPIPRAZOLE [Concomitant]
     Active Substance: ARIPIPRAZOLE
     Indication: Mood swings
     Dosage: UNKNOWN
     Route: 065
  7. ARIPIPRAZOLE [Concomitant]
     Active Substance: ARIPIPRAZOLE
     Indication: Anxiety
  8. BENADRYL [Concomitant]
     Active Substance: DIPHENHYDRAMINE HYDROCHLORIDE
     Indication: Product used for unknown indication
     Dosage: UNKNOWN
     Route: 065
  9. COGENTIN [Concomitant]
     Active Substance: BENZTROPINE MESYLATE
     Indication: Akathisia
     Dosage: UNKNOWN
     Route: 065
  10. EFFEXOR [Concomitant]
     Active Substance: VENLAFAXINE HYDROCHLORIDE
     Indication: Product used for unknown indication
     Dosage: UNKNOWN
     Route: 065
  11. METOPROLOL [Concomitant]
     Active Substance: METOPROLOL
     Indication: Heart rate increased
     Dosage: UNKNOWN
     Route: 065
     Dates: start: 202310
  12. MIRALAX [Concomitant]
     Active Substance: POLYETHYLENE GLYCOL 3350
     Indication: Product used for unknown indication
     Dosage: UNKNOWN
     Route: 065
  13. PRAVASTATIN [Concomitant]
     Active Substance: PRAVASTATIN
     Indication: Blood cholesterol
     Dosage: UNKNOWN
     Route: 065
  14. ROBAXIN [Concomitant]
     Active Substance: METHOCARBAMOL
     Indication: Musculoskeletal stiffness
     Dosage: UNKNOWN
     Route: 065
     Dates: start: 202406
  15. ROBAXIN [Concomitant]
     Active Substance: METHOCARBAMOL
     Indication: Pain
  16. SUMATRIPTAN [Concomitant]
     Active Substance: SUMATRIPTAN
     Indication: Migraine
     Dosage: UNKNOWN
     Route: 065
     Dates: start: 20240421
  17. VRAYLAR [Concomitant]
     Active Substance: CARIPRAZINE
     Indication: Product used for unknown indication
     Dosage: UNKNOWN
     Route: 065
     Dates: start: 202308

REACTIONS (16)
  - Dehydration [Unknown]
  - Dysphonia [Unknown]
  - Arthralgia [Unknown]
  - Self-injurious ideation [Unknown]
  - Dry throat [Unknown]
  - Lip dry [Unknown]
  - Panic reaction [Unknown]
  - Joint stiffness [Unknown]
  - Feeling abnormal [Not Recovered/Not Resolved]
  - Sensation of foreign body [Unknown]
  - Oropharyngeal pain [Unknown]
  - Musculoskeletal pain [Recovered/Resolved]
  - Dry mouth [Unknown]
  - Pain in extremity [Unknown]
  - Akathisia [Unknown]
  - Hypotension [Not Recovered/Not Resolved]

NARRATIVE: CASE EVENT DATE: 20240811
